FAERS Safety Report 7332293-5 (Version None)
Quarter: 2011Q1

REPORT INFORMATION
  Report Type: 
  Country: None (occurrence: None)
  Receive Date: 20110304
  Receipt Date: 20110228
  Transmission Date: 20110831
  Serious: Yes (Other)
  Sender: FDA-Public Use
  Company Number: US-ABBOTT-11P-163-0696321-00

PATIENT
  Sex: Female
  Weight: 49.94 kg

DRUGS (3)
  1. HUMIRA [Suspect]
     Indication: COLITIS ULCERATIVE
     Dates: start: 20100101, end: 20101001
  2. ANTIBIOTICS [Suspect]
     Indication: BARTHOLIN'S CYST REMOVAL
     Dates: start: 20110201
  3. DILAUDID [Concomitant]
     Indication: PAIN

REACTIONS (15)
  - FURUNCLE [None]
  - PAIN [None]
  - ABSCESS [None]
  - NAUSEA [None]
  - IMMUNE SYSTEM DISORDER [None]
  - WEIGHT DECREASED [None]
  - HERPES ZOSTER [None]
  - CROHN'S DISEASE [None]
  - DIARRHOEA [None]
  - ASTHENIA [None]
  - SEPSIS [None]
  - VOMITING [None]
  - IMPAIRED HEALING [None]
  - BARTHOLINITIS [None]
  - MALAISE [None]
